FAERS Safety Report 17731654 (Version 2)
Quarter: 2022Q3

REPORT INFORMATION
  Report Type: Spontaneous
  Country: US (occurrence: US)
  Receive Date: 20200501
  Receipt Date: 20220810
  Transmission Date: 20221027
  Serious: Yes (Other)
  Sender: FDA-Public Use
  Company Number: US-SUN PHARMACEUTICAL INDUSTRIES LTD-2020R1-245053

PATIENT
  Age: 39 Year
  Sex: Male

DRUGS (3)
  1. DOXORUBICIN [Suspect]
     Active Substance: DOXORUBICIN
     Indication: Thymoma malignant
     Dosage: UNK,EIGHT CYCLES
     Route: 065
  2. CISPLATIN [Suspect]
     Active Substance: CISPLATIN
     Indication: Thymoma malignant
     Dosage: UNK,EIGHT CYCLES
     Route: 065
  3. CYCLOPHOSPHAMIDE [Suspect]
     Active Substance: CYCLOPHOSPHAMIDE
     Indication: Thymoma malignant
     Dosage: UNK,EIGHT CYCLES
     Route: 065

REACTIONS (1)
  - Evans syndrome [Recovered/Resolved]
